FAERS Safety Report 8139975-6 (Version None)
Quarter: 2012Q1

REPORT INFORMATION
  Report Type: 
  Country: None (occurrence: None)
  Receive Date: 20120215
  Receipt Date: 20120213
  Transmission Date: 20120608
  Serious: Yes (Life-Threatening)
  Sender: FDA-Public Use
  Company Number: US-MERCK-1201USA04139

PATIENT
  Age: 72 Year
  Sex: Female
  Weight: 109 kg

DRUGS (1)
  1. COZAAR [Suspect]
     Indication: BLOOD PRESSURE
     Route: 048
     Dates: start: 20100721, end: 20100727

REACTIONS (1)
  - DRUG HYPERSENSITIVITY [None]
